FAERS Safety Report 8448898-4 (Version None)
Quarter: 2012Q2

REPORT INFORMATION
  Report Type: 
  Country: None (occurrence: None)
  Receive Date: 20120619
  Receipt Date: 20120612
  Transmission Date: 20120825
  Serious: Yes (Hospitalization)
  Sender: FDA-Public Use
  Company Number: US-GLAXOSMITHKLINE-A0980973A

PATIENT
  Age: 76 Year
  Sex: Female

DRUGS (15)
  1. ASPIRIN [Concomitant]
  2. VITAMIN D [Concomitant]
  3. ADVAIR DISKUS 100/50 [Suspect]
     Indication: CHRONIC OBSTRUCTIVE PULMONARY DISEASE
     Route: 055
     Dates: start: 20120101
  4. AMLODIPINE [Concomitant]
  5. AMBIEN [Concomitant]
  6. CITALOPRAM [Concomitant]
  7. POTASSIUM ACETATE [Concomitant]
  8. IRON [Concomitant]
  9. HYDROCHLOROTHIAZIDE [Concomitant]
  10. LIPITOR [Concomitant]
  11. ALBUTEROL [Concomitant]
  12. ALPRAZOLAM [Concomitant]
  13. CALCIUM CARBONATE [Concomitant]
  14. FAMOTIDINE [Concomitant]
  15. OXYCODONE HCL [Concomitant]

REACTIONS (3)
  - DYSPNOEA [None]
  - WHEEZING [None]
  - TREATMENT NONCOMPLIANCE [None]
